FAERS Safety Report 6757584-8 (Version None)
Quarter: 2010Q2

REPORT INFORMATION
  Report Type: 
  Country: None (occurrence: None)
  Receive Date: 20100607
  Receipt Date: 20100528
  Transmission Date: 20101027
  Serious: Yes (Other)
  Sender: FDA-Public Use
  Company Number: BE-BAYER-201013703GPV

PATIENT
  Age: 81 Year
  Sex: Female
  Weight: 44 kg

DRUGS (3)
  1. NEXAVAR [Suspect]
     Indication: DRUG USE FOR UNKNOWN INDICATION
     Route: 048
     Dates: start: 20090616
  2. NEXAVAR [Suspect]
     Route: 048
     Dates: end: 20100201
  3. BUSCOPAN [Concomitant]

REACTIONS (15)
  - ABDOMINAL DISTENSION [None]
  - ABDOMINAL PAIN [None]
  - ASCITES [None]
  - BACK PAIN [None]
  - CHOLELITHIASIS [None]
  - DIARRHOEA [None]
  - DRY MOUTH [None]
  - HAEMOPTYSIS [None]
  - HEADACHE [None]
  - MUSCLE SPASMS [None]
  - NAUSEA [None]
  - OEDEMA PERIPHERAL [None]
  - POOR QUALITY SLEEP [None]
  - SKIN REACTION [None]
  - WEIGHT DECREASED [None]
